FAERS Safety Report 4477490-1 (Version None)
Quarter: 2004Q4

REPORT INFORMATION
  Report Type: 
  Country: None (occurrence: None)
  Receive Date: 20041018
  Receipt Date: 20041006
  Transmission Date: 20050328
  Serious: Yes (Life-Threatening, Hospitalization, Other)
  Sender: FDA-Public Use
  Company Number: CA-GLAXOSMITHKLINE-A0529212A

PATIENT
  Age: 19 Year
  Sex: Female

DRUGS (2)
  1. PAXIL [Suspect]
     Indication: DEPRESSION
     Dosage: 20MG PER DAY
     Route: 048
  2. NO CONCURRENT MEDICATION [Concomitant]

REACTIONS (3)
  - ELECTROCARDIOGRAM QT PROLONGED [None]
  - NERVOUS SYSTEM DISORDER [None]
  - VENTRICULAR FIBRILLATION [None]
